FAERS Safety Report 15773454 (Version 2)
Quarter: 2019Q1

REPORT INFORMATION
  Report Type: Spontaneous
  Country: US (occurrence: US)
  Receive Date: 20181228
  Receipt Date: 20190125
  Transmission Date: 20190417
  Serious: No
  Sender: FDA-Public Use
  Company Number: US-CYCLE PHARMACEUTICALS LTD-2018-CYC-000010

PATIENT
  Sex: Female

DRUGS (1)
  1. NITYR [Suspect]
     Active Substance: NITISINONE
     Indication: TYROSINAEMIA
     Dosage: 2 MG, QD
     Dates: start: 20181205

REACTIONS (6)
  - Dermatitis diaper [Unknown]
  - Hyperhidrosis [Unknown]
  - Constipation [Not Recovered/Not Resolved]
  - Alopecia [Not Recovered/Not Resolved]
  - Irritability [Not Recovered/Not Resolved]
  - Sleep disorder [Not Recovered/Not Resolved]

NARRATIVE: CASE EVENT DATE: 2018
